FAERS Safety Report 6435273-7 (Version None)
Quarter: 2009Q4

REPORT INFORMATION
  Report Type: 
  Country: None (occurrence: None)
  Receive Date: 20091110
  Receipt Date: 20091103
  Transmission Date: 20100525
  Serious: Yes (Other)
  Sender: FDA-Public Use
  Company Number: US-AMGEN-US359857

PATIENT
  Sex: Female
  Weight: 75.4 kg

DRUGS (5)
  1. NPLATE [Suspect]
     Indication: IDIOPATHIC THROMBOCYTOPENIC PURPURA
     Route: 058
     Dates: start: 20090403, end: 20091023
  2. CORTICOSTEROIDS [Concomitant]
     Route: 065
     Dates: start: 20081126
  3. IMMUNOGLOBULINS [Concomitant]
     Route: 042
     Dates: start: 20081126
  4. PREDNISONE [Concomitant]
  5. SOLU-MEDROL [Concomitant]

REACTIONS (2)
  - THERAPEUTIC RESPONSE DECREASED [None]
  - THROMBOCYTOPENIA [None]
